FAERS Safety Report 5135203-4 (Version None)
Quarter: 2006Q4

REPORT INFORMATION
  Report Type: 
  Country: None (occurrence: None)
  Receive Date: 20061026
  Receipt Date: 20061016
  Transmission Date: 20070319
  Serious: Yes (Death)
  Sender: FDA-Public Use
  Company Number: CA-JNJFOC-20061003964

PATIENT
  Age: 48 Year
  Sex: Male

DRUGS (3)
  1. TYLENOL W/ CODEINE NO. 3 [Suspect]
     Indication: PAIN
  2. CESAMET [Suspect]
  3. CESAMET [Suspect]
     Indication: PAIN

REACTIONS (3)
  - COMPLETED SUICIDE [None]
  - DEPRESSION [None]
  - EUPHORIC MOOD [None]
